FAERS Safety Report 10918401 (Version 1)
Quarter: 2015Q1

REPORT INFORMATION
  Report Type: Spontaneous
  Country: US (occurrence: US)
  Receive Date: 20150316
  Receipt Date: 20150316
  Transmission Date: 20150721
  Serious: No
  Sender: FDA-Public Use
  Company Number: US-GALDERMA-US14001863

PATIENT
  Age: 58 Year
  Sex: Male

DRUGS (5)
  1. AVAPRO [Concomitant]
     Active Substance: IRBESARTAN
     Indication: HYPERTENSION
  2. DIAL SOAP [Concomitant]
     Indication: THERAPEUTIC SKIN CARE TOPICAL
     Route: 061
  3. PRILOSEC [Concomitant]
     Active Substance: OMEPRAZOLE MAGNESIUM
     Indication: DYSPEPSIA
  4. TRI-LUMA [Suspect]
     Active Substance: FLUOCINOLONE ACETONIDE\HYDROQUINONE\TRETINOIN
     Indication: SKIN DISCOLOURATION
     Route: 061
     Dates: start: 20140509, end: 20140515
  5. TRI-LUMA [Suspect]
     Active Substance: FLUOCINOLONE ACETONIDE\HYDROQUINONE\TRETINOIN
     Indication: POST INFLAMMATORY PIGMENTATION CHANGE

REACTIONS (10)
  - Skin exfoliation [Unknown]
  - Erythema [Unknown]
  - Dermatitis contact [Unknown]
  - Blister [Unknown]
  - Skin discolouration [Unknown]
  - Product use issue [Recovered/Resolved]
  - Skin burning sensation [Unknown]
  - Pain of skin [Not Recovered/Not Resolved]
  - Scar [Unknown]
  - Skin haemorrhage [Not Recovered/Not Resolved]

NARRATIVE: CASE EVENT DATE: 20140509
